FAERS Safety Report 13839600 (Version 3)
Quarter: 2017Q3

REPORT INFORMATION
  Report Type: Report from Study
  Country: IT (occurrence: IT)
  Receive Date: 20170807
  Receipt Date: 20170907
  Transmission Date: 20171127
  Serious: Yes (Life-Threatening)
  Sender: FDA-Public Use
  Company Number: IT-TEVA-793043ACC

PATIENT
  Age: 26 Year
  Sex: Female
  Weight: 75 kg

DRUGS (3)
  1. CEFAZOLINA TEVA -1 G POLVERE E SOLVENTE PER SOLUZIONE INIETTABILE [Suspect]
     Active Substance: CEFAZOLIN SODIUM
     Indication: ANTIBIOTIC PROPHYLAXIS
     Dosage: 2 G TOTAL
     Route: 041
     Dates: start: 20170718, end: 20170718
  2. DESAMETASONE FOSFATO HOSPIRA - 4MG/ML SOLUZIONE INIETTABILE - HOSPIRA [Concomitant]
     Indication: ALLERGY PROPHYLAXIS
     Route: 042
     Dates: start: 20170718, end: 20170718
  3. RANITIDINA S.A.L.F. - 50 MG/ML SOLUZIONE INIETTABILE - S.A.L.F. SPA LA [Concomitant]
     Indication: GASTRITIS PROPHYLAXIS
     Route: 042
     Dates: start: 20170718, end: 20170718

REACTIONS (2)
  - Erythema [Recovered/Resolved]
  - Laryngeal oedema [Recovered/Resolved]

NARRATIVE: CASE EVENT DATE: 20170718
